FAERS Safety Report 14200264 (Version 1)
Quarter: 2017Q4

REPORT INFORMATION
  Report Type: Spontaneous
  Country: US (occurrence: US)
  Receive Date: 20171117
  Receipt Date: 20171117
  Transmission Date: 20180321
  Serious: No
  Sender: FDA-Public Use
  Company Number: US-ASTRAZENECA-2017SF14563

PATIENT
  Age: 18524 Day
  Sex: Male
  Weight: 108.9 kg

DRUGS (7)
  1. INVOKANA [Concomitant]
     Active Substance: CANAGLIFLOZIN
     Route: 048
  2. PRAVASTATIN. [Concomitant]
     Active Substance: PRAVASTATIN
     Route: 048
  3. GLIPIZIDE. [Concomitant]
     Active Substance: GLIPIZIDE
     Route: 048
  4. FENOFIBRATE. [Concomitant]
     Active Substance: FENOFIBRATE
     Route: 048
  5. BYDUREON [Suspect]
     Active Substance: EXENATIDE
     Indication: TYPE 2 DIABETES MELLITUS
     Route: 058
     Dates: start: 201709
  6. LISINOPRIL. [Concomitant]
     Active Substance: LISINOPRIL
     Indication: HYPERTENSION
     Route: 048
  7. LOW-DOSE ADULT ASPIRIN [Concomitant]
     Indication: PROPHYLAXIS
     Route: 048

REACTIONS (3)
  - Device malfunction [Unknown]
  - Injection site pain [Recovered/Resolved]
  - Injection site nodule [Unknown]

NARRATIVE: CASE EVENT DATE: 20171002
